FAERS Safety Report 11878669 (Version 1)
Quarter: 2015Q4

REPORT INFORMATION
  Report Type: Spontaneous
  Country: US (occurrence: None)
  Receive Date: 20151229
  Receipt Date: 20151229
  Transmission Date: 20160305
  Serious: Yes (Disabling)
  Sender: FDA-Public Use
  Company Number: None

PATIENT
  Age: 55 Year
  Sex: Female
  Weight: 55.79 kg

DRUGS (1)
  1. BUPROPION HYDROCHLORIDE (XL) [Suspect]
     Active Substance: BUPROPION HYDROCHLORIDE
     Indication: DEPRESSION
     Route: 048
     Dates: start: 20151015, end: 20151228

REACTIONS (3)
  - Drug ineffective [None]
  - Product substitution issue [None]
  - Depression [None]

NARRATIVE: CASE EVENT DATE: 20151228
